FAERS Safety Report 5660530-1 (Version None)
Quarter: 2008Q1

REPORT INFORMATION
  Report Type: 
  Country: None (occurrence: None)
  Receive Date: 20080311
  Receipt Date: 20071107
  Transmission Date: 20080703
  Serious: No
  Sender: FDA-Public Use
  Company Number: US-BAYER-200713680BCC

PATIENT
  Age: 70 Year
  Sex: Female
  Weight: 70 kg

DRUGS (11)
  1. ALEVE [Suspect]
     Indication: PAIN
     Route: 048
     Dates: start: 20071105, end: 20071106
  2. ALEVE [Suspect]
     Route: 048
     Dates: start: 20071107
  3. FUROSEMIDE [Concomitant]
  4. LYRICA [Concomitant]
  5. TRAMADOL HCL [Concomitant]
  6. PROTONIX [Concomitant]
  7. HYDROXYZINE [Concomitant]
  8. FLOVENT [Concomitant]
  9. COMBIVENT [Concomitant]
  10. PROAIR HFA [Concomitant]
  11. VARIOUS VITAMINS [Concomitant]

REACTIONS (1)
  - OEDEMA PERIPHERAL [None]
